FAERS Safety Report 26069900 (Version 1)
Quarter: 2025Q4

REPORT INFORMATION
  Report Type: Spontaneous
  Country: US (occurrence: US)
  Receive Date: 20251120
  Receipt Date: 20251120
  Transmission Date: 20260119
  Serious: No
  Sender: CATALYST PHARMA
  Company Number: US-CATALYST PHARMACEUTICALS-US-CATA-25-01472

PATIENT
  Age: 3 Year
  Sex: Male
  Weight: 14.512 kg

DRUGS (8)
  1. AGAMREE [Suspect]
     Active Substance: VAMOROLONE
     Indication: Duchenne muscular dystrophy
     Dosage: 0.6 ML DAILY
     Route: 048
     Dates: start: 20240411, end: 2024
  2. AGAMREE [Suspect]
     Active Substance: VAMOROLONE
     Dosage: 1.2 ML DAILY
     Route: 048
     Dates: start: 20241023
  3. IBUPROFEN CHILDREN^S [Concomitant]
     Indication: Pyrexia
     Dosage: 5 ML AS NEEDED
     Route: 048
  4. IBUPROFEN CHILDREN^S [Concomitant]
     Indication: Pain
  5. ACETAMINOPHEN INFANT [Concomitant]
     Indication: Pyrexia
     Dosage: 5 ML AS NEEDED
     Route: 048
  6. ACETAMINOPHEN INFANT [Concomitant]
     Indication: Pain
  7. ZOFRAN [Concomitant]
     Active Substance: ONDANSETRON HYDROCHLORIDE
     Indication: Nausea
     Dosage: 4 MG AS NEEDED
     Route: 048
  8. MINERALS\VITAMINS [Concomitant]
     Active Substance: MINERALS\VITAMINS
     Indication: Hypovitaminosis
     Dosage: ONE TABLET DAILY
     Route: 048

REACTIONS (4)
  - Pyrexia [Recovered/Resolved]
  - Rhinorrhoea [Recovered/Resolved]
  - Nasal congestion [Recovered/Resolved]
  - Cough [Recovered/Resolved]

NARRATIVE: CASE EVENT DATE: 20250901
